FAERS Safety Report 19994837 (Version 1)
Quarter: 2021Q4

REPORT INFORMATION
  Report Type: Spontaneous
  Country: US (occurrence: US)
  Receive Date: 20211025
  Receipt Date: 20211025
  Transmission Date: 20220303
  Serious: Yes (Other)
  Sender: FDA-Public Use
  Company Number: None

PATIENT
  Age: 6 Year
  Sex: Female

DRUGS (1)
  1. EVEROLIMUS [Suspect]
     Active Substance: EVEROLIMUS
     Indication: Tuberous sclerosis complex
     Route: 048
     Dates: start: 201805

REACTIONS (4)
  - Seizure [None]
  - Upper respiratory tract infection [None]
  - Diarrhoea [None]
  - Escherichia infection [None]

NARRATIVE: CASE EVENT DATE: 20211025
